FAERS Safety Report 7820443-3 (Version None)
Quarter: 2011Q4

REPORT INFORMATION
  Report Type: 
  Country: None (occurrence: None)
  Receive Date: 20111018
  Receipt Date: 20111011
  Transmission Date: 20120403
  Serious: No
  Sender: FDA-Public Use
  Company Number: JP-ROCHE-757695

PATIENT
  Sex: Female

DRUGS (1)
  1. TAMIFLU [Suspect]
     Indication: INFLUENZA
     Dosage: ORAL FORMATION (NOT OTHERWISE SPECIFIED).
     Route: 048
     Dates: start: 20091201, end: 20091205

REACTIONS (3)
  - NORMAL NEWBORN [None]
  - PREGNANCY [None]
  - CAESAREAN SECTION [None]
